FAERS Safety Report 7211103-0 (Version None)
Quarter: 2011Q1

REPORT INFORMATION
  Report Type: 
  Country: None (occurrence: None)
  Receive Date: 20110105
  Receipt Date: 20101213
  Transmission Date: 20110831
  Serious: No
  Sender: FDA-Public Use
  Company Number: US-B.I. PHARMACEUTICALS,INC./RIDGEFIELD-2010-BP-14393BP

PATIENT
  Sex: Male

DRUGS (1)
  1. ATROVENT HFA [Suspect]

REACTIONS (2)
  - OROPHARYNGEAL BLISTERING [None]
  - LIP BLISTER [None]
